FAERS Safety Report 15167696 (Version 3)
Quarter: 2019Q3

REPORT INFORMATION
  Report Type: Spontaneous
  Country: US (occurrence: US)
  Receive Date: 20180719
  Receipt Date: 20190802
  Transmission Date: 20191004
  Serious: No
  Sender: FDA-Public Use
  Company Number: US-PFIZER INC-2018287475

PATIENT
  Age: 46 Year
  Sex: Female

DRUGS (6)
  1. NORCO [Concomitant]
     Active Substance: ACETAMINOPHEN\HYDROCODONE BITARTRATE
     Dosage: [HYDROCODONE BITARTRATE 7]/ [PARACETAMOL 325], AS NEEDED OR 3 TIMES A DAY
  2. PLAQUENIL [Concomitant]
     Active Substance: HYDROXYCHLOROQUINE SULFATE
     Dosage: 50 MG, 2X/DAY
  3. MIRTAZAPINE. [Concomitant]
     Active Substance: MIRTAZAPINE
     Dosage: 30 MG, EVERY NIGHT
  4. SOMA [Concomitant]
     Active Substance: CARISOPRODOL
     Dosage: 350 AS NEEDED OR 3 TIMES A DAY
  5. SULFASALAZINE. [Concomitant]
     Active Substance: SULFASALAZINE
     Dosage: 500 MG, 2X/DAY
  6. LYRICA [Suspect]
     Active Substance: PREGABALIN
     Indication: FIBROMYALGIA
     Dosage: 200 MG, 3X/DAY

REACTIONS (9)
  - Back pain [Not Recovered/Not Resolved]
  - Depression [Unknown]
  - Condition aggravated [Unknown]
  - Intentional product misuse [Recovered/Resolved]
  - Weight increased [Not Recovered/Not Resolved]
  - Overweight [Not Recovered/Not Resolved]
  - Crying [Unknown]
  - Pain [Recovered/Resolved]
  - Malaise [Unknown]
